FAERS Safety Report 23510004 (Version 3)
Quarter: 2024Q2

REPORT INFORMATION
  Report Type: Spontaneous
  Country: US (occurrence: US)
  Receive Date: 20240211
  Receipt Date: 20240521
  Transmission Date: 20240716
  Serious: No
  Sender: FDA-Public Use
  Company Number: US-SA-SAC20240202000683

PATIENT
  Age: 81 Year
  Sex: Female

DRUGS (1)
  1. DUPIXENT [Suspect]
     Active Substance: DUPILUMAB
     Indication: Dermatitis atopic
     Dosage: 300 MG, QOW
     Route: 058

REACTIONS (15)
  - Dry skin [Unknown]
  - Skin fissures [Unknown]
  - Skin weeping [Unknown]
  - Skin haemorrhage [Recovering/Resolving]
  - Joint stiffness [Unknown]
  - Eye pain [Unknown]
  - Feeling hot [Unknown]
  - Skin exfoliation [Unknown]
  - Pruritus [Unknown]
  - Erythema [Unknown]
  - Eye inflammation [Unknown]
  - Eye pruritus [Unknown]
  - Dry eye [Unknown]
  - Rash [Unknown]
  - Dermatitis atopic [Unknown]
